APPROVED DRUG PRODUCT: PHENYLBUTAZONE
Active Ingredient: PHENYLBUTAZONE
Strength: 100MG
Dosage Form/Route: CAPSULE;ORAL
Application: A088218 | Product #001
Applicant: IVAX PHARMACEUTICALS INC
Approved: Jun 24, 1983 | RLD: No | RS: No | Type: DISCN